FAERS Safety Report 10674038 (Version 4)
Quarter: 2015Q2

REPORT INFORMATION
  Report Type: Report from Study
  Country: PL (occurrence: PL)
  Receive Date: 20141224
  Receipt Date: 20150401
  Transmission Date: 20150821
  Serious: Yes (Hospitalization)
  Sender: FDA-Public Use
  Company Number: PHHY2014PL164108

PATIENT
  Age: 64 Year
  Sex: Male
  Weight: 76 kg

DRUGS (4)
  1. AFINITOR [Suspect]
     Active Substance: EVEROLIMUS
     Dosage: 5 MG, QD
     Route: 048
     Dates: start: 20141211, end: 20141222
  2. AFINITOR [Suspect]
     Active Substance: EVEROLIMUS
     Indication: RENAL CANCER
     Dosage: 10 MG, QD
     Route: 048
     Dates: start: 20141029, end: 20141107
  3. AFINITOR [Suspect]
     Active Substance: EVEROLIMUS
     Dosage: UNK
     Route: 048
     Dates: start: 20150205
  4. AFINITOR [Suspect]
     Active Substance: EVEROLIMUS
     Dosage: UNK
     Route: 048
     Dates: start: 20150108

REACTIONS (11)
  - Skin lesion [Recovered/Resolved]
  - Pruritus [Unknown]
  - Disease progression [Unknown]
  - Skin lesion [Unknown]
  - Rash vesicular [Unknown]
  - Rash papular [Recovered/Resolved]
  - Skin oedema [Unknown]
  - Urticaria [Unknown]
  - Skin discolouration [Not Recovered/Not Resolved]
  - Rash erythematous [Unknown]
  - Rash generalised [Unknown]

NARRATIVE: CASE EVENT DATE: 20141107
